FAERS Safety Report 25903495 (Version 4)
Quarter: 2025Q4

REPORT INFORMATION
  Report Type: Spontaneous
  Country: US (occurrence: US)
  Receive Date: 20251009
  Receipt Date: 20251204
  Transmission Date: 20260118
  Serious: Yes (Hospitalization, Other)
  Sender: ABBVIE
  Company Number: US-ABBVIE-6493749

PATIENT
  Sex: Female

DRUGS (5)
  1. ARMOUR THYROID [Suspect]
     Active Substance: THYROID, PORCINE
     Indication: Hypothyroidism
     Dosage: 1 X 30 MILLIGRAM IN THE MORNING AND THEN 0.7MG OF 15 MILLIGRAM TABLET
     Route: 048
  2. ARMOUR THYROID [Suspect]
     Active Substance: THYROID, PORCINE
     Indication: Hypothyroidism
     Dosage: 30 MILLIGRAM TWICE A DAY
     Route: 048
     Dates: start: 2014
  3. ARMOUR THYROID [Suspect]
     Active Substance: THYROID, PORCINE
     Indication: Hypothyroidism
     Route: 048
  4. ARMOUR THYROID [Suspect]
     Active Substance: THYROID, PORCINE
     Indication: Hypothyroidism
     Dosage: QUARTER / 0.7 OF A TABLET
     Route: 048
  5. LEVOTHYROXINE [Suspect]
     Active Substance: LEVOTHYROXINE
     Indication: Product used for unknown indication
     Route: 048

REACTIONS (7)
  - Loss of consciousness [Unknown]
  - Blood thyroid stimulating hormone decreased [Unknown]
  - Off label use [Unknown]
  - Palpitations [Unknown]
  - Anxiety [Unknown]
  - Throat tightness [Unknown]
  - Wrong technique in product usage process [Unknown]
